FAERS Safety Report 20749973 (Version 1)
Quarter: 2022Q2

REPORT INFORMATION
  Report Type: Spontaneous
  Country: US (occurrence: None)
  Receive Date: 20220425
  Receipt Date: 20220425
  Transmission Date: 20220721
  Serious: Yes (Other)
  Sender: FDA-Public Use
  Company Number: None

PATIENT
  Age: 48 Year
  Sex: Male
  Weight: 139.5 kg

DRUGS (6)
  1. TRULICITY [Suspect]
     Active Substance: DULAGLUTIDE
     Indication: Diabetes mellitus
     Dosage: OTHER QUANTITY : 1 INJECTION(S);?OTHER FREQUENCY : ONCE WEEKLY;?
     Route: 058
     Dates: start: 20220123, end: 20220425
  2. Met forming [Concomitant]
  3. ZYRTEC [Concomitant]
     Active Substance: CETIRIZINE HYDROCHLORIDE
  4. protons [Concomitant]
  5. motion [Concomitant]
  6. gapaupentin [Concomitant]

REACTIONS (3)
  - Alopecia [None]
  - Alopecia [None]
  - Pruritus [None]

NARRATIVE: CASE EVENT DATE: 20220408
